FAERS Safety Report 6905763-9 (Version None)
Quarter: 2010Q3

REPORT INFORMATION
  Report Type: 
  Country: None (occurrence: None)
  Receive Date: 20100730
  Receipt Date: 20100721
  Transmission Date: 20110219
  Serious: Yes (Other)
  Sender: FDA-Public Use
  Company Number: TPA2010A04191

PATIENT
  Age: 59 Year
  Sex: Female
  Weight: 93.441 kg

DRUGS (6)
  1. ACTOS [Suspect]
     Indication: DIABETES MELLITUS
     Dosage: 30 MG, 2 IN 1 D, ORAL
     Route: 048
     Dates: start: 19980101
  2. GLIPIZIDE [Suspect]
     Indication: DIABETES MELLITUS
     Dosage: 100 MG, 2 IN 1 D, ORAL
     Route: 048
     Dates: start: 19980101
  3. LIPITOR [Suspect]
     Indication: BLOOD CHOLESTEROL INCREASED
     Dosage: 10 MG, 1 IN 1 D, ORAL
     Route: 048
  4. NEURONTIN [Suspect]
     Indication: NERVE INJURY
     Dosage: 100 MG, 2 IN 1 D, ORAL
     Route: 048
     Dates: start: 20000101
  5. NEURONTIN [Suspect]
     Indication: PERIPHERAL NERVE INJURY
     Dosage: 100 MG, 2 IN 1 D, ORAL
     Route: 048
     Dates: start: 20000101
  6. CAPTOPRIL [Concomitant]

REACTIONS (1)
  - RENAL DISORDER [None]
